FAERS Safety Report 23973947 (Version 1)
Quarter: 2024Q2

REPORT INFORMATION
  Report Type: Spontaneous
  Country: CN (occurrence: CN)
  Receive Date: 20240613
  Receipt Date: 20240613
  Transmission Date: 20240715
  Serious: Yes (Hospitalization, Other)
  Sender: FDA-Public Use
  Company Number: CN-BEIGENE-BGN-2024-008528

PATIENT

DRUGS (2)
  1. TISLELIZUMAB [Suspect]
     Active Substance: TISLELIZUMAB
     Indication: Hepatic cancer
     Dosage: 200 MILLIGRAM, Q3WK D1
     Route: 041
     Dates: start: 20230509
  2. REGORAFENIB [Concomitant]
     Active Substance: REGORAFENIB
     Indication: Hepatic cancer
     Dosage: 80 MILLIGRAM, QWK, D1-D5
     Dates: start: 20230509

REACTIONS (9)
  - Myelosuppression [Not Recovered/Not Resolved]
  - Blood thyroid stimulating hormone increased [Not Recovered/Not Resolved]
  - Ascites [Unknown]
  - Urinary retention [Unknown]
  - Pollakiuria [Unknown]
  - Pyrexia [Unknown]
  - Decreased appetite [Unknown]
  - Abdominal pain [Unknown]
  - Cough [Unknown]

NARRATIVE: CASE EVENT DATE: 20230603
